FAERS Safety Report 11708242 (Version 2)
Quarter: 2016Q1

REPORT INFORMATION
  Report Type: Report from Study
  Country: CO (occurrence: CO)
  Receive Date: 20151107
  Receipt Date: 20160212
  Transmission Date: 20160525
  Serious: Yes (Hospitalization)
  Sender: FDA-Public Use
  Company Number: CO-ABBVIE-15K-036-1495835-00

PATIENT
  Age: 34 Year
  Sex: Male
  Weight: 112 kg

DRUGS (1)
  1. HUMIRA [Suspect]
     Active Substance: ADALIMUMAB
     Indication: PSORIASIS
     Route: 058
     Dates: start: 20131115, end: 20150526

REACTIONS (4)
  - Malaise [Recovered/Resolved]
  - Pain in extremity [Recovered/Resolved]
  - Blood test abnormal [Recovered/Resolved]
  - Dizziness [Recovered/Resolved]

NARRATIVE: CASE EVENT DATE: 20151017
